FAERS Safety Report 8835709 (Version 1)
Quarter: 2012Q4

REPORT INFORMATION
  Report Type: 
  Country: US (occurrence: US)
  Receive Date: 20121011
  Receipt Date: 20121011
  Transmission Date: 20130627
  Serious: No
  Sender: FDA-Public Use
  Company Number: US-PFIZER INC-2012250017

PATIENT
  Sex: Female

DRUGS (1)
  1. ADVIL ALLERGY SINUS [Suspect]
     Indication: SINUS DISORDER
     Dosage: UNK
     Dates: start: 20121008

REACTIONS (1)
  - Heart rate increased [Unknown]
